FAERS Safety Report 5927751-1 (Version None)
Quarter: 2008Q4

REPORT INFORMATION
  Report Type: 
  Country: None (occurrence: None)
  Receive Date: 20081020
  Receipt Date: 20081002
  Transmission Date: 20090506
  Serious: Yes (Hospitalization)
  Sender: FDA-Public Use
  Company Number: US024795

PATIENT
  Age: 33 Year
  Sex: Male
  Weight: 87.2 kg

DRUGS (3)
  1. ARMODAFINIL [Suspect]
     Indication: SCHIZOPHRENIA
     Dosage: 250 MG QD ORAL
     Route: 048
     Dates: start: 20080919, end: 20080927
  2. LORAZEPAM [Concomitant]
  3. SEROQUEL [Concomitant]

REACTIONS (4)
  - AGITATION [None]
  - CONDITION AGGRAVATED [None]
  - MEDICATION ERROR [None]
  - SCHIZOPHRENIA [None]
